FAERS Safety Report 6914777-4 (Version None)
Quarter: 2010Q3

REPORT INFORMATION
  Report Type: 
  Country: None (occurrence: None)
  Receive Date: 20100809
  Receipt Date: 20100803
  Transmission Date: 20110219
  Serious: Yes (Death)
  Sender: FDA-Public Use
  Company Number: IT-CUBIST-2010S1000332

PATIENT
  Age: 79 Year
  Sex: Male

DRUGS (1)
  1. CUBICIN [Suspect]
     Indication: PRODUCT USED FOR UNKNOWN INDICATION
     Route: 042
     Dates: start: 20100515, end: 20100519

REACTIONS (2)
  - RENAL FAILURE [None]
  - SEPTIC SHOCK [None]
